FAERS Safety Report 10044968 (Version 4)
Quarter: 2014Q3

REPORT INFORMATION
  Report Type: Not Available
  Country: DE (occurrence: DE)
  Receive Date: 20140328
  Receipt Date: 20140807
  Transmission Date: 20150326
  Serious: Yes (Other)
  Sender: FDA-Public Use
  Company Number: DE-BEH-2014041314

PATIENT
  Age: 2 Year
  Sex: Female
  Weight: 12.4 kg

DRUGS (6)
  1. PRIVIGEN [Suspect]
     Active Substance: HUMAN IMMUNOGLOBULIN G
     Indication: KAWASAKI^S DISEASE
     Dosage: ADMINISTRATION OVER 6-8 HOURS
     Route: 042
     Dates: start: 20140301, end: 20140301
  2. ASPIRIN. [Concomitant]
     Active Substance: ASPIRIN
     Dosage: 3 X 100 MG
     Route: 042
  3. ANTIBIOTICS [Concomitant]
     Active Substance: UNSPECIFIED INGREDIENT
     Dates: end: 20140227
  4. CEFUROXIM [Concomitant]
     Active Substance: CEFUROXIME
     Dosage: 3X 400 MG
     Route: 042
  5. OMEPRAZOL [Concomitant]
     Active Substance: OMEPRAZOLE
     Dosage: 2 X 10 MG
     Route: 042
  6. ANALGESICS [Concomitant]
     Active Substance: UNSPECIFIED INGREDIENT

REACTIONS (11)
  - Hypotension [Recovered/Resolved]
  - Eyelid oedema [Recovered/Resolved]
  - Cardiovascular disorder [Unknown]
  - Restlessness [Recovered/Resolved]
  - Tachycardia [Recovered/Resolved]
  - Anaphylactic reaction [Recovered/Resolved]
  - Rash [Recovered/Resolved]
  - Flushing [Recovered/Resolved]
  - Crying [Recovered/Resolved]
  - Hypersensitivity [Unknown]
  - Chills [Recovered/Resolved]

NARRATIVE: CASE EVENT DATE: 20140301
